FAERS Safety Report 4299368-9 (Version None)
Quarter: 2004Q1

REPORT INFORMATION
  Report Type: 
  Country: None (occurrence: None)
  Receive Date: 20040219
  Receipt Date: 20031124
  Transmission Date: 20041129
  Serious: No
  Sender: FDA-Public Use
  Company Number: US-GLAXOSMITHKLINE-A0441011A

PATIENT
  Age: 88 Year
  Sex: Male

DRUGS (4)
  1. AVODART [Suspect]
     Indication: BENIGN PROSTATIC HYPERPLASIA
     Dosage: .5MG PER DAY
     Route: 048
     Dates: start: 20030801
  2. XANAX [Concomitant]
  3. CARDURA [Concomitant]
  4. PRILOSEC [Concomitant]

REACTIONS (2)
  - DRUG INEFFECTIVE [None]
  - PLATELET COUNT DECREASED [None]
